FAERS Safety Report 5167635-2 (Version None)
Quarter: 2006Q4

REPORT INFORMATION
  Report Type: 
  Country: None (occurrence: None)
  Receive Date: 20061204
  Receipt Date: 20061204
  Transmission Date: 20070319
  Serious: Yes (Life-Threatening, Hospitalization)
  Sender: FDA-Public Use
  Company Number: None

PATIENT
  Age: 63 Year
  Sex: Female
  Weight: 72.5755 kg

DRUGS (3)
  1. LISINOPRIL [Suspect]
     Indication: HYPERTENSION
     Dosage: 1 TABLET ONCE DAILY PO
     Route: 048
     Dates: start: 20060501, end: 20060710
  2. LISINOPRIL [Suspect]
     Indication: PROPHYLAXIS
     Dosage: 1 TABLET ONCE DAILY PO
     Route: 048
     Dates: start: 20060501, end: 20060710
  3. LISINOPRIL [Suspect]
     Indication: RENAL DISORDER
     Dosage: 1 TABLET ONCE DAILY PO
     Route: 048
     Dates: start: 20060501, end: 20060710

REACTIONS (1)
  - ANGIONEUROTIC OEDEMA [None]
